FAERS Safety Report 9127133 (Version 2)
Quarter: 2013Q1

REPORT INFORMATION
  Report Type: Spontaneous
  Country: CA (occurrence: CA)
  Receive Date: 20130228
  Receipt Date: 20130322
  Transmission Date: 20140127
  Serious: Yes (Life-Threatening, Hospitalization)
  Sender: FDA-Public Use
  Company Number: CA-PFIZER INC-2013070535

PATIENT
  Age: 62 Year
  Sex: Male

DRUGS (4)
  1. TECTA [Suspect]
     Indication: GASTROOESOPHAGEAL REFLUX DISEASE
     Dosage: 40 MG, 2X/DAY
     Route: 048
     Dates: start: 201203, end: 201206
  2. SINGULAIR [Concomitant]
     Dosage: 10 MG, UNK
     Route: 048
  3. DIFLUCAN [Concomitant]
     Dosage: UNK
     Route: 048
  4. MULTIVITAMINS [Concomitant]
     Dosage: UNK

REACTIONS (8)
  - Generalised oedema [Not Recovered/Not Resolved]
  - Anxiety [Not Recovered/Not Resolved]
  - Pallor [Not Recovered/Not Resolved]
  - Tremor [Not Recovered/Not Resolved]
  - Swelling [Not Recovered/Not Resolved]
  - Rash [Not Recovered/Not Resolved]
  - Headache [Not Recovered/Not Resolved]
  - Visual impairment [Not Recovered/Not Resolved]
